FAERS Safety Report 12393950 (Version 5)
Quarter: 2016Q4

REPORT INFORMATION
  Report Type: Spontaneous
  Country: AU (occurrence: AU)
  Receive Date: 20160523
  Receipt Date: 20161019
  Transmission Date: 20170207
  Serious: Yes (Life-Threatening, Hospitalization, Other)
  Sender: FDA-Public Use
  Company Number: AU-PFIZER INC-2016263063

PATIENT
  Age: 5 Year
  Sex: Female
  Weight: 13 kg

DRUGS (6)
  1. GENOTROPIN GOQUICK [Suspect]
     Active Substance: SOMATROPIN
     Indication: GROWTH HORMONE DEFICIENCY
     Dosage: 2.5 MG, WEEKLY, OVER SIX DAYS A WEEK
     Route: 058
  2. GENOTROPIN GOQUICK [Suspect]
     Active Substance: SOMATROPIN
     Dosage: 3.4 MG, WEEKLY
     Route: 058
  3. THYROXINE [Concomitant]
     Active Substance: LEVOTHYROXINE
     Dosage: 50 UG, DAILY
     Route: 048
  4. GENOTROPIN GOQUICK [Suspect]
     Active Substance: SOMATROPIN
     Dosage: 3.2 MG, UNK
     Route: 058
  5. THYROXINE [Concomitant]
     Active Substance: LEVOTHYROXINE
     Dosage: 25 UG, ONCE A DAY FOR TWO DAYS
     Route: 048
     Dates: start: 201510
  6. THYROXINE [Concomitant]
     Active Substance: LEVOTHYROXINE
     Indication: HYPOTHYROIDISM
     Dosage: 50 UG, ONCE A DAY FOR FIVE DAYS
     Route: 048
     Dates: start: 201510

REACTIONS (3)
  - Extradural haematoma [Recovered/Resolved]
  - Fall [Recovered/Resolved]
  - Head injury [Recovered/Resolved]

NARRATIVE: CASE EVENT DATE: 20160127
